FAERS Safety Report 25044389 (Version 1)
Quarter: 2025Q1

REPORT INFORMATION
  Report Type: Spontaneous
  Country: GR (occurrence: GR)
  Receive Date: 20250306
  Receipt Date: 20250306
  Transmission Date: 20250409
  Serious: Yes (Other)
  Sender: CELLTRION
  Company Number: GR-CELLTRION INC.-2025GR006581

PATIENT

DRUGS (2)
  1. INFLIXIMAB [Suspect]
     Active Substance: INFLIXIMAB
     Indication: Arthritis
     Dosage: 120 MG, EVERY 2 WEEKS
     Route: 058
     Dates: start: 202411, end: 202502
  2. INFLIXIMAB [Suspect]
     Active Substance: INFLIXIMAB
     Indication: Colitis ulcerative

REACTIONS (4)
  - Haematochezia [Unknown]
  - Condition aggravated [Unknown]
  - Mucous stools [Unknown]
  - Arthralgia [Unknown]
